FAERS Safety Report 25539661 (Version 7)
Quarter: 2025Q4

REPORT INFORMATION
  Report Type: Report from Study
  Country: EU (occurrence: EU)
  Receive Date: 20250710
  Receipt Date: 20251121
  Transmission Date: 20260117
  Serious: Yes (Death, Life-Threatening, Other)
  Sender: PFIZER
  Company Number: EU-AUROBINDO-AUR-APL-2025-032614

PATIENT
  Age: 65 Year
  Sex: Male

DRUGS (32)
  1. DOXORUBICIN HYDROCHLORIDE [Suspect]
     Active Substance: DOXORUBICIN HYDROCHLORIDE
     Indication: T-cell lymphoma stage II
     Dosage: 50 MILLIGRAM/SQ. METER, CYCLICAL
     Dates: start: 20250619, end: 20250619
  2. BELINOSTAT [Suspect]
     Active Substance: BELINOSTAT
     Indication: T-cell lymphoma stage II
     Dosage: 600 MILLIGRAM/SQ. METER, CYCLICAL
     Dates: start: 20250619, end: 20250619
  3. BELINOSTAT [Suspect]
     Active Substance: BELINOSTAT
     Dosage: 600 MILLIGRAM/SQ. METER, CYCLICAL
     Dates: start: 20250625, end: 20250625
  4. BELINOSTAT [Suspect]
     Active Substance: BELINOSTAT
     Dosage: 600 MILLIGRAM/SQ. METER, CYCLICAL
     Dates: start: 20250626, end: 20250626
  5. CYCLOPHOSPHAMIDE [Suspect]
     Active Substance: CYCLOPHOSPHAMIDE
     Indication: T-cell lymphoma stage II
     Dosage: 750 MILLIGRAM/SQ. METER, CYCLICAL
     Dates: start: 20250619, end: 20250619
  6. ONCOVIN [Suspect]
     Active Substance: VINCRISTINE SULFATE
     Indication: T-cell lymphoma stage II
     Dosage: 1.4 MILLIGRAM/SQ. METER, CYCLICAL
     Dates: start: 20250619, end: 20250619
  7. PREDNISONE ACETATE [Suspect]
     Active Substance: PREDNISONE ACETATE
     Indication: T-cell lymphoma stage II
     Dosage: 100 MG, CYCLIC
     Route: 048
     Dates: start: 20250619
  8. PREDNISONE ACETATE [Suspect]
     Active Substance: PREDNISONE ACETATE
     Dosage: 100 MG, CYCLICAL (DAY 1 TO DAY 5 OF EACH 21 DAYS CYCLE)
     Route: 048
     Dates: start: 20250620
  9. PREDNISONE ACETATE [Suspect]
     Active Substance: PREDNISONE ACETATE
     Dosage: 100 MG, CYCLICAL (DAY 1 TO DAY 5 OF EACH 21 DAYS CYCLE)
     Route: 048
     Dates: start: 20250621
  10. PREDNISONE ACETATE [Suspect]
     Active Substance: PREDNISONE ACETATE
     Dosage: 100 MG, CYCLICAL (DAY 1 TO DAY 5 OF EACH 21 DAYS CYCLE)
     Route: 048
     Dates: start: 20250625, end: 20250625
  11. PREDNISONE ACETATE [Suspect]
     Active Substance: PREDNISONE ACETATE
     Dosage: 100 MG, CYCLICAL (DAY 1 TO DAY 5 OF EACH 21 DAYS CYCLE)
     Route: 048
     Dates: start: 20250626, end: 20250626
  12. IMIPENEM [Concomitant]
     Active Substance: IMIPENEM
     Dosage: 500 MILLIGRAM, FOUR TIMES/DAY
     Route: 042
     Dates: start: 20250613, end: 20250617
  13. FOLIC ACID [Concomitant]
     Active Substance: FOLIC ACID
     Dosage: 5 MILLIGRAM, ONCE A DAY
     Route: 048
     Dates: start: 20250616, end: 20250617
  14. FOLIC ACID [Concomitant]
     Active Substance: FOLIC ACID
     Dosage: UNK
     Dates: start: 20250617
  15. NYSTATIN [Concomitant]
     Active Substance: NYSTATIN
     Dosage: 5 MILLILITER, TWO TIMES A DAY
     Route: 048
     Dates: start: 20250616
  16. FUROSEMIDE [Concomitant]
     Active Substance: FUROSEMIDE
     Dosage: 20 MILLIGRAM, ONCE A DAY
     Route: 048
     Dates: start: 20250616, end: 20250617
  17. FUROSEMIDE [Concomitant]
     Active Substance: FUROSEMIDE
     Dosage: 20 MILLIGRAM, ONCE A DAY
     Route: 048
     Dates: start: 20250617
  18. FUROSEMIDE [Concomitant]
     Active Substance: FUROSEMIDE
     Dosage: 20 MILLIGRAM, ONCE A DAY
     Route: 048
     Dates: start: 20250621
  19. AMLODIPINE BESYLATE [Concomitant]
     Active Substance: AMLODIPINE BESYLATE
     Indication: Hypertension
     Dosage: 5 MILLIGRAM, ONCE A DAY
     Route: 048
     Dates: start: 20250617
  20. SULFAMETHOXAZOLE\TRIMETHOPRIM [Concomitant]
     Active Substance: SULFAMETHOXAZOLE\TRIMETHOPRIM
     Dosage: 800/160 MILLIGRAM
     Route: 048
     Dates: start: 20250617
  21. LEUCOVORIN [Concomitant]
     Active Substance: LEUCOVORIN\LEUCOVORIN CALCIUM
     Indication: Vitamin supplementation
     Dosage: 15 MILLIGRAM, EVERY OTHER DAY
     Route: 048
     Dates: start: 20250617
  22. LORAZEPAM [Concomitant]
     Active Substance: LORAZEPAM
     Dosage: 1 MILLIGRAM, ONCE A DAY
     Route: 048
     Dates: start: 20250605
  23. ACETAMINOPHEN [Concomitant]
     Active Substance: ACETAMINOPHEN
     Dosage: 1 GRAM, 3 TIMES A DAY
     Route: 042
     Dates: start: 20250613
  24. ACETAMINOPHEN [Concomitant]
     Active Substance: ACETAMINOPHEN
     Dosage: UNK
     Route: 050
     Dates: start: 20250625
  25. OMEPRAZOLE [Concomitant]
     Active Substance: OMEPRAZOLE
     Indication: Abdominal pain upper
     Dosage: 20 MILLIGRAM, ONCE A DAY
     Route: 048
     Dates: start: 20250606
  26. PREDNISONE [Concomitant]
     Active Substance: PREDNISONE
     Indication: Inflammatory pain
     Dosage: 80 MILLIGRAM, ONCE A DAY
     Route: 048
     Dates: start: 20250616, end: 20250618
  27. ALLOPURINOL [Concomitant]
     Active Substance: ALLOPURINOL
     Indication: Hyperuricaemia
     Dosage: 300 MILLIGRAM, ONCE A DAY
     Route: 048
     Dates: start: 20250613
  28. ACYCLOVIR [Concomitant]
     Active Substance: ACYCLOVIR
     Indication: Infection prophylaxis
     Dosage: 800 MILLIGRAM, ONCE A DAY
     Route: 048
     Dates: start: 20250617
  29. DEXCHLORPHENIRAMINE [Concomitant]
     Active Substance: DEXCHLORPHENIRAMINE
     Indication: Hypotension
     Dosage: 5 MILLIGRAM, ONCE A DAY
     Route: 042
     Dates: start: 20250625, end: 20250625
  30. SODIUM CHLORIDE [Concomitant]
     Active Substance: SODIUM CHLORIDE
     Dosage: UNK
     Route: 065
     Dates: start: 20250613
  31. METHYLPREDNISOLONE [Concomitant]
     Active Substance: METHYLPREDNISOLONE
     Dosage: UNK
     Dates: start: 20250616, end: 20250618
  32. METHYLPREDNISOLONE [Concomitant]
     Active Substance: METHYLPREDNISOLONE
     Indication: Hypotension
     Dosage: 40 MILLIGRAM, ONCE A DAY
     Route: 042
     Dates: start: 20250625, end: 20250625

REACTIONS (11)
  - Haemophagocytic lymphohistiocytosis [Fatal]
  - Neutropenia [Recovered/Resolved]
  - Hypoxia [Recovered/Resolved]
  - Infusion related reaction [Recovered/Resolved]
  - Dyspnoea [Recovered/Resolved]
  - Anaemia [Recovered/Resolved]
  - Neuropathy peripheral [Not Recovered/Not Resolved]
  - Thrombocytopenia [Recovered/Resolved]
  - Hypotension [Recovered/Resolved]
  - Oedema peripheral [Recovered/Resolved]
  - Oral candidiasis [Recovered/Resolved]

NARRATIVE: CASE EVENT DATE: 20250616
